FAERS Safety Report 4775685-0 (Version None)
Quarter: 2005Q3

REPORT INFORMATION
  Report Type: 
  Country: None (occurrence: None)
  Receive Date: 20050921
  Receipt Date: 20050908
  Transmission Date: 20060218
  Serious: Yes (Other)
  Sender: FDA-Public Use
  Company Number: 2005125587

PATIENT
  Sex: Male

DRUGS (1)
  1. NATURAL CITRUS LISTERINE (MENTHOL, METHYL SALICYLATE, EUCALYPTOL, THYM [Suspect]
     Indication: ACCIDENTAL EXPOSURE
     Dosage: HALF OF 1.0 L BOTTLE ONCE, ORAL
     Route: 048

REACTIONS (6)
  - ACCIDENTAL EXPOSURE [None]
  - FEELING ABNORMAL [None]
  - HALLUCINATION, VISUAL [None]
  - INAPPROPRIATE AFFECT [None]
  - OVERDOSE [None]
  - VISION BLURRED [None]
